FAERS Safety Report 8088703-1 (Version None)
Quarter: 2012Q1

REPORT INFORMATION
  Report Type: 
  Country: None (occurrence: None)
  Receive Date: 20120128
  Receipt Date: 20110607
  Transmission Date: 20120608
  Serious: No
  Sender: FDA-Public Use
  Company Number: US-ABBOTT-11P-163-0730743-00

PATIENT
  Sex: Female
  Weight: 41.314 kg

DRUGS (3)
  1. HUMIRA [Suspect]
     Indication: RHEUMATOID ARTHRITIS
     Route: 058
     Dates: start: 20070523
  2. UNKNOWN LAXATIVE [Concomitant]
     Indication: PRODUCT USED FOR UNKNOWN INDICATION
  3. BENICAR [Concomitant]
     Indication: BLOOD PRESSURE

REACTIONS (2)
  - SKIN WARM [None]
  - ERYTHEMA [None]
